FAERS Safety Report 6928958-7 (Version None)
Quarter: 2010Q3

REPORT INFORMATION
  Report Type: 
  Country: None (occurrence: None)
  Receive Date: 20100817
  Receipt Date: 20100811
  Transmission Date: 20110219
  Serious: No
  Sender: FDA-Public Use
  Company Number: US-PFIZER INC-2010063115

PATIENT
  Sex: Male
  Weight: 107.94 kg

DRUGS (4)
  1. VIAGRA [Suspect]
     Indication: ERECTILE DYSFUNCTION
     Dosage: 100 MG, AS NEEDED
     Route: 048
     Dates: start: 20100403, end: 20100503
  2. LISINOPRIL [Concomitant]
     Dosage: 40 MG, 1X/DAY
  3. METFORMIN [Concomitant]
     Dosage: 1000 MG, 2X/DAY
  4. TRAZODONE [Concomitant]
     Dosage: 50 MG, UNK

REACTIONS (1)
  - DRUG INEFFECTIVE [None]
